FAERS Safety Report 4538089-1 (Version None)
Quarter: 2004Q4

REPORT INFORMATION
  Report Type: 
  Country: None (occurrence: None)
  Receive Date: 20041223
  Receipt Date: 20041223
  Transmission Date: 20050328
  Serious: No
  Sender: FDA-Public Use
  Company Number: None

PATIENT
  Sex: Female

DRUGS (7)
  1. CITALOPRAM [Suspect]
     Indication: DEPRESSION
     Dosage: TK  ONE
     Dates: start: 20041122, end: 20041210
  2. FUROSEMIDE [Concomitant]
  3. NORVASC [Concomitant]
  4. MOXEPRIL [Concomitant]
  5. TOPROL-XL [Concomitant]
  6. ALPRAZOLAM [Concomitant]
  7. ALLEGRA-D [Concomitant]

REACTIONS (3)
  - PANIC ATTACK [None]
  - PHARMACEUTICAL PRODUCT COMPLAINT [None]
  - TREMOR [None]
